FAERS Safety Report 9247542 (Version 2)
Quarter: 2013Q2

REPORT INFORMATION
  Report Type: Report from Study
  Country: BR (occurrence: BR)
  Receive Date: 20130423
  Receipt Date: 20130625
  Transmission Date: 20140414
  Serious: Yes (Other)
  Sender: FDA-Public Use
  Company Number: PHHY2013BR038710

PATIENT
  Sex: Female
  Weight: 64 kg

DRUGS (7)
  1. DIOVAN [Suspect]
     Indication: HYPERTENSION
     Dosage: 320 MG, DAILY
     Dates: start: 201211
  2. DIOVAN [Suspect]
     Dosage: 160 MG, UNK
  3. DIOVAN [Suspect]
     Dosage: 320 MG, DAILY
  4. INSULIN [Concomitant]
     Indication: DIABETES MELLITUS
     Dosage: 2 APPLICATION DAILY
  5. RIVOTRIL [Concomitant]
     Indication: INSOMNIA
     Dosage: 1 OR HALF TABLET , PER DAY
     Route: 048
  6. METFORMIN [Concomitant]
     Indication: DIABETES MELLITUS
     Dosage: 1500 MG, PER DAY
     Route: 048
  7. HYDROCHLOROTHIAZIDE [Concomitant]
     Indication: HYPERTENSION
     Dosage: 25 MG, PER DAY
     Route: 048

REACTIONS (5)
  - Cardiovascular insufficiency [Recovered/Resolved]
  - Necrosis [Recovering/Resolving]
  - Inflammation of wound [Not Recovered/Not Resolved]
  - Tension [Not Recovered/Not Resolved]
  - Nervousness [Not Recovered/Not Resolved]
